FAERS Safety Report 15883668 (Version 1)
Quarter: 2019Q1

REPORT INFORMATION
  Report Type: Spontaneous
  Country: US (occurrence: US)
  Receive Date: 20190107
  Receipt Date: 20190107
  Transmission Date: 20190417
  Serious: Yes (Hospitalization)
  Sender: FDA-Public Use
  Company Number: None

PATIENT
  Age: 47 Year
  Sex: Male
  Weight: 86.6 kg

DRUGS (3)
  1. 5-FLUOROURACIL (5-FU) [Suspect]
     Active Substance: FLUOROURACIL
     Dates: end: 20181217
  2. LEUCOVORIN CALCIUM. [Suspect]
     Active Substance: LEUCOVORIN CALCIUM
     Dates: end: 20181217
  3. ELOXATIN [Suspect]
     Active Substance: OXALIPLATIN
     Dates: end: 20181217

REACTIONS (3)
  - Febrile neutropenia [None]
  - Heart rate increased [None]
  - Dehydration [None]

NARRATIVE: CASE EVENT DATE: 20181231
